FAERS Safety Report 12700002 (Version 1)
Quarter: 2016Q3

REPORT INFORMATION
  Report Type: Spontaneous
  Country: BR (occurrence: BR)
  Receive Date: 20160830
  Receipt Date: 20160830
  Transmission Date: 20161109
  Serious: Yes (Hospitalization)
  Sender: FDA-Public Use
  Company Number: BR-PFIZER INC-2016399664

PATIENT
  Age: 74 Year
  Sex: Female

DRUGS (2)
  1. FRONTAL XR [Suspect]
     Active Substance: ALPRAZOLAM
     Indication: AGITATION
  2. FRONTAL XR [Suspect]
     Active Substance: ALPRAZOLAM
     Indication: ANXIETY
     Dosage: UNK
     Dates: end: 201608

REACTIONS (11)
  - Diarrhoea [Unknown]
  - Pain [Unknown]
  - Activities of daily living impaired [Not Recovered/Not Resolved]
  - Accident [Unknown]
  - Abdominal pain [Unknown]
  - Upper limb fracture [Unknown]
  - Palpitations [Unknown]
  - Malaise [Not Recovered/Not Resolved]
  - Tremor [Unknown]
  - Abdominal discomfort [Unknown]
  - Peripheral swelling [Not Recovered/Not Resolved]
